FAERS Safety Report 19252664 (Version 1)
Quarter: 2021Q2

REPORT INFORMATION
  Report Type: Spontaneous
  Country: US (occurrence: US)
  Receive Date: 20210513
  Receipt Date: 20210513
  Transmission Date: 20210717
  Serious: Yes (Hospitalization)
  Sender: FDA-Public Use
  Company Number: None

PATIENT
  Age: 32 Year
  Sex: Male
  Weight: 133.6 kg

DRUGS (5)
  1. ONCASPAR [Suspect]
     Active Substance: PEGASPARGASE
     Dates: end: 20180124
  2. METHOTREXATE. [Suspect]
     Active Substance: METHOTREXATE
     Dates: end: 20180131
  3. MERCAPTOPURINE. [Suspect]
     Active Substance: MERCAPTOPURINE
     Dates: end: 20180208
  4. CYCLOPHOSPHAMIDE. [Suspect]
     Active Substance: CYCLOPHOSPHAMIDE
     Dates: end: 20180207
  5. CYTARABINE. [Suspect]
     Active Substance: CYTARABINE
     Dates: end: 20180208

REACTIONS (16)
  - Tachycardia [None]
  - Viral infection [None]
  - Hyperhidrosis [None]
  - Confusional state [None]
  - Hyperglycaemia [None]
  - Anaemia [None]
  - Disturbance in attention [None]
  - White blood cell count decreased [None]
  - Shift to the left [None]
  - Shock [None]
  - Transfusion [None]
  - Nausea [None]
  - Hypotension [None]
  - Sepsis [None]
  - Blood lactic acid decreased [None]
  - Thrombocytopenia [None]

NARRATIVE: CASE EVENT DATE: 20180208
